FAERS Safety Report 16588465 (Version 1)
Quarter: 2019Q3

REPORT INFORMATION
  Report Type: Spontaneous
  Country: US (occurrence: US)
  Receive Date: 20190718
  Receipt Date: 20190718
  Transmission Date: 20191004
  Serious: No
  Sender: FDA-Public Use
  Company Number: US-AMGEN-USASP2019113181

PATIENT

DRUGS (2)
  1. ENBREL [Suspect]
     Active Substance: ETANERCEPT
     Indication: DEMENTIA ALZHEIMER^S TYPE
  2. ENBREL [Suspect]
     Active Substance: ETANERCEPT
     Indication: DEMENTIA
     Dosage: UNK
     Route: 065

REACTIONS (1)
  - Off label use [Unknown]
